FAERS Safety Report 5144790-1 (Version None)
Quarter: 2006Q4

REPORT INFORMATION
  Report Type: 
  Country: None (occurrence: None)
  Receive Date: 20061103
  Receipt Date: 20061103
  Transmission Date: 20070319
  Serious: Yes (Life-Threatening, Hospitalization)
  Sender: FDA-Public Use
  Company Number: None

PATIENT
  Age: 73 Year
  Sex: Female
  Weight: 73.0291 kg

DRUGS (12)
  1. TICLID [Suspect]
     Indication: PROPHYLAXIS
     Dosage: 250 MG BID
  2. TICLID [Suspect]
     Indication: TRANSIENT ISCHAEMIC ATTACK
     Dosage: 250 MG BID
  3. VYTORIN [Concomitant]
  4. TRICOR [Concomitant]
  5. METFORMIN [Concomitant]
  6. NIFEDIPINE [Concomitant]
  7. FOSINOPRIL SODIUM [Concomitant]
  8. EVISTA [Concomitant]
  9. AMITRIPTYLINE HCL [Concomitant]
  10. SINEMET [Concomitant]
  11. GLIPIZIDE [Concomitant]
  12. CLONIDINE [Concomitant]

REACTIONS (3)
  - ASTHENIA [None]
  - RENAL FAILURE ACUTE [None]
  - THROMBOTIC THROMBOCYTOPENIC PURPURA [None]
